FAERS Safety Report 25510016 (Version 1)
Quarter: 2025Q3

REPORT INFORMATION
  Report Type: Spontaneous
  Country: EU (occurrence: EU)
  Receive Date: 20250703
  Receipt Date: 20250703
  Transmission Date: 20251020
  Serious: Yes (Hospitalization)
  Sender: MERCK SHARP & DOHME LLC
  Company Number: EU-009507513-2293308

PATIENT
  Sex: Male

DRUGS (1)
  1. DORAVIRINE [Suspect]
     Active Substance: DORAVIRINE
     Indication: HIV infection
     Dosage: 1 TABLET QD
     Route: 048

REACTIONS (3)
  - Diarrhoea [Unknown]
  - Overdose [Not Recovered/Not Resolved]
  - Drug level increased [Unknown]
